FAERS Safety Report 11459861 (Version 2)
Quarter: 2016Q1

REPORT INFORMATION
  Report Type: Report from Study
  Country: JP (occurrence: JP)
  Receive Date: 20150904
  Receipt Date: 20160121
  Transmission Date: 20160525
  Serious: Yes (Hospitalization, Other)
  Sender: FDA-Public Use
  Company Number: JP-AMGEN-JPNCT2015091388

PATIENT
  Age: 3 Year
  Sex: Female
  Weight: 13 kg

DRUGS (20)
  1. RENAGEL [Concomitant]
     Active Substance: SEVELAMER HYDROCHLORIDE
     Indication: CHRONIC KIDNEY DISEASE
  2. KEFRAL [Concomitant]
     Active Substance: CEFACLOR
     Indication: DEVICE RELATED INFECTION
     Dosage: UNK
     Route: 048
  3. LONGES [Concomitant]
     Active Substance: LISINOPRIL
     Indication: HYPERTENSION
  4. SODIUM BICARBONATE. [Concomitant]
     Active Substance: SODIUM BICARBONATE
     Indication: CHRONIC KIDNEY DISEASE
     Dosage: UNK
     Route: 048
  5. AMLODIPINE [Concomitant]
     Active Substance: AMLODIPINE BESYLATE
     Indication: HYPERTENSION
     Dosage: UNK
     Route: 048
  6. PICOSULFATE NA [Concomitant]
     Indication: CONSTIPATION
     Dosage: UNK
     Route: 048
  7. LONGES [Concomitant]
     Active Substance: LISINOPRIL
     Indication: CHRONIC KIDNEY DISEASE
     Dosage: UNK
     Route: 048
  8. WASSER V [Concomitant]
     Indication: HYPOVITAMINOSIS
     Dosage: UNK
     Route: 048
  9. RENAGEL [Concomitant]
     Active Substance: SEVELAMER HYDROCHLORIDE
     Indication: ELECTROLYTE IMBALANCE
     Dosage: UNK
     Route: 048
  10. ALFAROL [Concomitant]
     Active Substance: ALFACALCIDOL
     Indication: CHRONIC KIDNEY DISEASE
     Dosage: UNK
     Route: 048
  11. INFLUENZA HA VACCINE [Concomitant]
     Active Substance: INFLUENZA VIRUS VACCINE
     Dosage: UNK
     Route: 058
  12. GENOTROPIN [Concomitant]
     Active Substance: SOMATROPIN
     Indication: DWARFISM
     Dosage: UNK
     Route: 065
  13. BACTROBAN [Concomitant]
     Active Substance: MUPIROCIN\MUPIROCIN CALCIUM
     Indication: DEVICE RELATED INFECTION
     Dosage: UNK
     Route: 061
  14. DARBEPOETIN ALFA [Suspect]
     Active Substance: DARBEPOETIN ALFA
     Indication: CONGENITAL NEPHROTIC SYNDROME
     Dosage: 60 MUG, UNK
     Route: 042
     Dates: start: 20130926
  15. K.C.L. [Concomitant]
     Indication: HYPOKALAEMIA
     Dosage: UNK
     Route: 048
  16. SODIUM BICARBONATE. [Concomitant]
     Active Substance: SODIUM BICARBONATE
     Indication: METABOLIC ACIDOSIS
  17. ANGINAL                            /00042901/ [Concomitant]
     Indication: THROMBOCYTOSIS
     Dosage: UNK
     Route: 048
  18. INCREMIN                           /00023544/ [Concomitant]
     Indication: CHRONIC KIDNEY DISEASE
     Dosage: UNK
     Route: 048
  19. ALFAROL [Concomitant]
     Active Substance: ALFACALCIDOL
     Indication: ELECTROLYTE IMBALANCE
  20. THYRADIN-S [Concomitant]
     Active Substance: LEVOTHYROXINE
     Indication: HYPOTHYROIDISM
     Dosage: UNK
     Route: 048

REACTIONS (9)
  - Eczema asteatotic [Recovered/Resolved]
  - Nasopharyngitis [Recovered/Resolved]
  - Bronchitis [Recovered/Resolved]
  - Bronchitis [Recovered/Resolved]
  - Product contamination [Recovered/Resolved]
  - Device related infection [Recovered/Resolved]
  - Inguinal hernia [Recovered/Resolved]
  - Device related infection [Recovered/Resolved]
  - Urticaria [Recovered/Resolved]

NARRATIVE: CASE EVENT DATE: 20131101
